FAERS Safety Report 22981508 (Version 2)
Quarter: 2024Q2

REPORT INFORMATION
  Report Type: Spontaneous
  Country: FR (occurrence: FR)
  Receive Date: 20230925
  Receipt Date: 20240503
  Transmission Date: 20240716
  Serious: Yes (Other)
  Sender: FDA-Public Use
  Company Number: None

PATIENT
  Age: 51 Year
  Sex: Male
  Weight: 108 kg

DRUGS (11)
  1. DAPTOMYCIN [Suspect]
     Active Substance: DAPTOMYCIN
     Indication: Bacteraemia
     Dosage: 1139 MG
     Route: 042
     Dates: start: 20230827, end: 20230827
  2. ALLOPURINOL [Suspect]
     Active Substance: ALLOPURINOL
     Indication: Gout
     Dosage: 50 MG, 1X/DAY
     Route: 048
     Dates: start: 20230824, end: 20230828
  3. COLCHICINE [Suspect]
     Active Substance: COLCHICINE
     Indication: Gout
     Dosage: 0.5 MG/DAY EVERY 2 DAYS
     Route: 048
     Dates: start: 20230819, end: 20230827
  4. RITONAVIR [Concomitant]
     Active Substance: RITONAVIR
  5. DARUNAVIR [Concomitant]
     Active Substance: DARUNAVIR
  6. URAPIDIL [Concomitant]
     Active Substance: URAPIDIL
  7. ACETAMINOPHEN [Concomitant]
     Active Substance: ACETAMINOPHEN
  8. PIPERACILLIN SODIUM\TAZOBACTAM SODIUM [Concomitant]
     Active Substance: PIPERACILLIN SODIUM\TAZOBACTAM SODIUM
  9. FUROSEMIDE [Concomitant]
     Active Substance: FUROSEMIDE
  10. LANSOPRAZOLE [Concomitant]
     Active Substance: LANSOPRAZOLE
  11. ETRAVIRINE [Concomitant]
     Active Substance: ETRAVIRINE

REACTIONS (2)
  - Erythema [Recovered/Resolved]
  - Off label use [Unknown]

NARRATIVE: CASE EVENT DATE: 20230827
